FAERS Safety Report 26189445 (Version 1)
Quarter: 2025Q4

REPORT INFORMATION
  Report Type: Spontaneous
  Country: CN (occurrence: CN)
  Receive Date: 20251223
  Receipt Date: 20251223
  Transmission Date: 20260118
  Serious: Yes (Other)
  Sender: ALCON
  Company Number: CN-ALCON LABORATORIES-ALC2025CN007645

PATIENT
  Age: 79 Year
  Sex: Female

DRUGS (3)
  1. FLUORESCEIN SODIUM [Suspect]
     Active Substance: FLUORESCEIN SODIUM
     Indication: Angiogram retina
     Dosage: 3 ML, QD
     Route: 042
     Dates: start: 20251210, end: 20251210
  2. INDOCYANINE GREEN [Concomitant]
     Active Substance: INDOCYANINE GREEN
     Indication: Angiogram retina
     Dosage: 25 MG, QD
     Route: 042
     Dates: start: 20251210, end: 20251210
  3. STERILE WATER FOR INJECTION [Concomitant]
     Active Substance: WATER
     Indication: Medication dilution
     Dosage: 2 ML, QD
     Route: 042
     Dates: start: 20251210, end: 20251210

REACTIONS (2)
  - Erythema [Recovering/Resolving]
  - Peripheral swelling [Recovering/Resolving]

NARRATIVE: CASE EVENT DATE: 20251212
